FAERS Safety Report 12669383 (Version 1)
Quarter: 2016Q3

REPORT INFORMATION
  Report Type: Spontaneous
  Country: CA (occurrence: CA)
  Receive Date: 20160819
  Receipt Date: 20160819
  Transmission Date: 20161109
  Serious: Yes (Other)
  Sender: FDA-Public Use
  Company Number: CA-NOVOPROD-506185

PATIENT
  Age: 29 Year
  Sex: Female
  Weight: 82 kg

DRUGS (1)
  1. SAXENDA [Suspect]
     Active Substance: LIRAGLUTIDE
     Indication: PRODUCT USED FOR UNKNOWN INDICATION
     Dosage: UNK
     Route: 065
     Dates: start: 20160315

REACTIONS (1)
  - Cholecystectomy [Unknown]

NARRATIVE: CASE EVENT DATE: 20160705
